FAERS Safety Report 22342659 (Version 2)
Quarter: 2024Q2

REPORT INFORMATION
  Report Type: Spontaneous
  Country: JP (occurrence: JP)
  Receive Date: 20230519
  Receipt Date: 20240408
  Transmission Date: 20240715
  Serious: Yes (Other)
  Sender: FDA-Public Use
  Company Number: JP-BRISTOL-MYERS SQUIBB COMPANY-2022-106368

PATIENT
  Age: 59 Year
  Sex: Male

DRUGS (2)
  1. YERVOY [Suspect]
     Active Substance: IPILIMUMAB
     Indication: Colorectal cancer
     Route: 041
     Dates: start: 20210624, end: 20210916
  2. OPDIVO [Suspect]
     Active Substance: NIVOLUMAB
     Indication: Colorectal cancer
     Route: 041
     Dates: start: 20210624, end: 20210916

REACTIONS (4)
  - Immune-mediated dermatitis [Recovered/Resolved]
  - Hyperthyroidism [Recovered/Resolved]
  - Addison^s disease [Recovered/Resolved]
  - Febrile neutropenia [Unknown]

NARRATIVE: CASE EVENT DATE: 20210628
